FAERS Safety Report 8018714-3 (Version None)
Quarter: 2012Q1

REPORT INFORMATION
  Report Type: 
  Country: None (occurrence: None)
  Receive Date: 20120103
  Receipt Date: 20120103
  Transmission Date: 20120608
  Serious: Yes (Life-Threatening)
  Sender: FDA-Public Use
  Company Number: None

PATIENT
  Age: 75 Year
  Sex: Female
  Weight: 55.791 kg

DRUGS (5)
  1. ALENDRONATE SODIUM [Concomitant]
  2. DIGOXIN [Concomitant]
  3. FLECAINIDE ACETATE [Concomitant]
  4. VERAPAMIL [Concomitant]
  5. DABIGATRAN [Suspect]
     Indication: ATRIAL FIBRILLATION

REACTIONS (3)
  - BRAIN MIDLINE SHIFT [None]
  - HAEMORRHAGE INTRACRANIAL [None]
  - INTRACRANIAL PRESSURE INCREASED [None]
